FAERS Safety Report 25927459 (Version 2)
Quarter: 2025Q4

REPORT INFORMATION
  Report Type: Report from Study
  Country: EU (occurrence: EU)
  Receive Date: 20251015
  Receipt Date: 20251208
  Transmission Date: 20260119
  Serious: Yes (Death, Other)
  Sender: ABBVIE
  Company Number: EU-ABBVIE-6502525

PATIENT
  Age: 67 Year
  Sex: Female

DRUGS (1)
  1. FOSCARBIDOPA\FOSLEVODOPA [Suspect]
     Active Substance: FOSCARBIDOPA\FOSLEVODOPA
     Indication: Parkinson^s disease
     Route: 058
     Dates: start: 20241209

REACTIONS (2)
  - Lung cancer metastatic [Fatal]
  - Neoplasm [Unknown]

NARRATIVE: CASE EVENT DATE: 20251119
